FAERS Safety Report 7201873-X (Version None)
Quarter: 2010Q4

REPORT INFORMATION
  Report Type: 
  Country: None (occurrence: None)
  Receive Date: 20101229
  Receipt Date: 20101220
  Transmission Date: 20110411
  Serious: Yes (Hospitalization)
  Sender: FDA-Public Use
  Company Number: FR-ASTRAZENECA-2010SE60318

PATIENT
  Age: 22894 Day
  Sex: Male

DRUGS (14)
  1. SYMBICORT [Suspect]
     Dosage: 1 DF THREE TIMES PER DAY
     Route: 055
     Dates: start: 20101108, end: 20101110
  2. OMEPRAZOLE [Suspect]
     Route: 048
     Dates: start: 20101029, end: 20101104
  3. BRICANYL [Suspect]
     Route: 055
     Dates: start: 20101108, end: 20101110
  4. TRAMADOL HCL [Suspect]
     Route: 048
     Dates: start: 20101029, end: 20101108
  5. AMOXICILLIN [Suspect]
     Route: 048
     Dates: start: 20101023, end: 20101029
  6. AUGMENTIN '125' [Suspect]
     Dosage: EVERY DAY
     Route: 048
     Dates: start: 20101104, end: 20101108
  7. CIPROFLOXACIN HYDROCHLORIDE [Suspect]
     Route: 048
     Dates: start: 20101104, end: 20101108
  8. NEOCODION [Suspect]
     Route: 048
     Dates: start: 20101104, end: 20101108
  9. DIMETANE [Suspect]
     Route: 048
     Dates: start: 20101023, end: 20101029
  10. ATROVENT [Suspect]
     Route: 055
     Dates: start: 20101108, end: 20101110
  11. KETOPROFEN [Suspect]
     Route: 048
     Dates: start: 20101029, end: 20101104
  12. CORTANCYL [Suspect]
     Route: 048
     Dates: start: 20101023, end: 20101027
  13. FLUISEDAL [Concomitant]
     Dates: start: 20101006, end: 20101012
  14. DERINOX [Concomitant]
     Dates: start: 20101006, end: 20101012

REACTIONS (1)
  - LEUKOCYTOCLASTIC VASCULITIS [None]
